FAERS Safety Report 15233177 (Version 1)
Quarter: 2018Q3

REPORT INFORMATION
  Report Type: Spontaneous
  Country: US (occurrence: US)
  Receive Date: 20180802
  Receipt Date: 20180802
  Transmission Date: 20181010
  Serious: Yes (Other)
  Sender: FDA-Public Use
  Company Number: US-ASTRAZENECA-2018SE96280

PATIENT
  Age: 82 Year
  Sex: Female

DRUGS (1)
  1. IMFINZI [Suspect]
     Active Substance: DURVALUMAB
     Indication: LUNG NEOPLASM MALIGNANT
     Dosage: 10 MG/KG TWICE A MONTH
     Route: 017

REACTIONS (8)
  - Dysphagia [Unknown]
  - Dyspnoea [Unknown]
  - Peripheral swelling [Unknown]
  - Speech disorder [Unknown]
  - Fatigue [Unknown]
  - Disorientation [Unknown]
  - Skin discolouration [Unknown]
  - Somnolence [Unknown]
